FAERS Safety Report 13723104 (Version 1)
Quarter: 2017Q3

REPORT INFORMATION
  Report Type: Spontaneous
  Country: US (occurrence: US)
  Receive Date: 20170706
  Receipt Date: 20170706
  Transmission Date: 20171127
  Serious: Yes (Other)
  Sender: FDA-Public Use
  Company Number: US-PFIZER INC-2017284878

PATIENT
  Age: 54 Year
  Sex: Female

DRUGS (1)
  1. SULFASALAZINE. [Suspect]
     Active Substance: SULFASALAZINE
     Dosage: UNK

REACTIONS (7)
  - Joint injury [Unknown]
  - Joint swelling [Unknown]
  - Fall [Unknown]
  - Arthralgia [Unknown]
  - Synovitis [Unknown]
  - Immunodeficiency [Unknown]
  - Fatigue [Unknown]
